FAERS Safety Report 26045935 (Version 1)
Quarter: 2025Q4

REPORT INFORMATION
  Report Type: Spontaneous
  Country: EU (occurrence: EU)
  Receive Date: 20251114
  Receipt Date: 20251114
  Transmission Date: 20260118
  Serious: Yes (Life-Threatening)
  Sender: RANBAXY
  Company Number: EU-URPL-DML-MLP.4401.1.3197.2021

PATIENT
  Age: 21 Year
  Sex: Female
  Weight: 70 kg

DRUGS (3)
  1. IBUPROFEN [Suspect]
     Active Substance: IBUPROFEN
     Indication: Product used for unknown indication
     Dosage: 4 GRAM, MAY 22 OR 23, 2021
     Route: 048
  2. MIRTAZAPINE [Suspect]
     Active Substance: MIRTAZAPINE
     Indication: Product used for unknown indication
     Dosage: 0.5 GRAM, MAY 22 OR 23, 2021
     Route: 048
  3. LAMOTRIGINE [Suspect]
     Active Substance: LAMOTRIGINE
     Indication: Product used for unknown indication
     Dosage: 5.5 GRAM, MAY 22 OR 23, 2021
     Route: 048

REACTIONS (5)
  - Altered state of consciousness [Recovering/Resolving]
  - Hypoventilation [Recovering/Resolving]
  - Toxicity to various agents [Unknown]
  - Toxicity to various agents [Unknown]
  - Suicide attempt [Recovering/Resolving]
